FAERS Safety Report 7955838-0 (Version None)
Quarter: 2011Q4

REPORT INFORMATION
  Report Type: 
  Country: None (occurrence: None)
  Receive Date: 20111205
  Receipt Date: 20111128
  Transmission Date: 20120403
  Serious: No
  Sender: FDA-Public Use
  Company Number: US-BIOGENIDEC-2010BI042585

PATIENT
  Age: 38 Year
  Sex: Female

DRUGS (1)
  1. TYSABRI [Suspect]
     Indication: MULTIPLE SCLEROSIS
     Route: 042
     Dates: start: 20090330

REACTIONS (5)
  - BACK PAIN [None]
  - CHOLELITHIASIS [None]
  - PLEURISY [None]
  - MEMORY IMPAIRMENT [None]
  - INTERVERTEBRAL DISC DISORDER [None]
